FAERS Safety Report 22081838 (Version 1)
Quarter: 2023Q1

REPORT INFORMATION
  Report Type: Spontaneous
  Country: US (occurrence: US)
  Receive Date: 20230310
  Receipt Date: 20230310
  Transmission Date: 20230418
  Serious: Yes (Other)
  Sender: FDA-Public Use
  Company Number: US-STRIDES ARCOLAB LIMITED-2023SP001899

PATIENT
  Age: 14 Year
  Sex: Male

DRUGS (6)
  1. CEPHALEXIN [Suspect]
     Active Substance: CEPHALEXIN
     Indication: Angioedema
     Dosage: UNK
     Route: 065
  2. CETIRIZINE [Suspect]
     Active Substance: CETIRIZINE HYDROCHLORIDE
     Indication: Angioedema
     Dosage: 20 MILLIGRAM/DAY
     Route: 065
  3. MONTELUKAST [Suspect]
     Active Substance: MONTELUKAST SODIUM
     Indication: Angioedema
     Dosage: UNK
     Route: 065
  4. PREDNISOLONE [Suspect]
     Active Substance: PREDNISOLONE
     Indication: Angioedema
     Dosage: 50 MILLIGRAM
     Route: 065
  5. MUPIROCIN [Suspect]
     Active Substance: MUPIROCIN
     Indication: Angioedema
     Dosage: UNK
     Route: 065
  6. VASELINE PURE [Concomitant]
     Active Substance: PETROLATUM
     Indication: Product used for unknown indication
     Dosage: UNK
     Route: 065

REACTIONS (1)
  - Drug ineffective [Unknown]
